FAERS Safety Report 22388654 (Version 1)
Quarter: 2023Q2

REPORT INFORMATION
  Report Type: Spontaneous
  Country: US (occurrence: US)
  Receive Date: 20230531
  Receipt Date: 20230531
  Transmission Date: 20230721
  Serious: No
  Sender: FDA-Public Use
  Company Number: US-SEBELA IRELAND LIMITED-2023SEB00009

PATIENT
  Sex: Female

DRUGS (2)
  1. LOTRONEX [Suspect]
     Active Substance: ALOSETRON HYDROCHLORIDE
     Dosage: UNK
     Dates: start: 2019, end: 2021
  2. LOTRONEX [Suspect]
     Active Substance: ALOSETRON HYDROCHLORIDE
     Dosage: UNK
     Dates: end: 20230215

REACTIONS (2)
  - Defaecation urgency [Unknown]
  - Product dose omission issue [Not Recovered/Not Resolved]

NARRATIVE: CASE EVENT DATE: 20230201
